FAERS Safety Report 24128397 (Version 2)
Quarter: 2024Q3

REPORT INFORMATION
  Report Type: Spontaneous
  Country: US (occurrence: US)
  Receive Date: 20240723
  Receipt Date: 20240819
  Transmission Date: 20241016
  Serious: Yes (Death, Hospitalization, Other)
  Sender: TEVA
  Company Number: US-TEVA-VS-3220247

PATIENT
  Sex: Male

DRUGS (13)
  1. GEMCITABINE [Suspect]
     Active Substance: GEMCITABINE
     Indication: Malignant splenic neoplasm
     Route: 065
  2. MESNA [Suspect]
     Active Substance: MESNA
     Indication: Malignant splenic neoplasm
     Route: 065
  3. AMOXICILLIN [Concomitant]
     Active Substance: AMOXICILLIN
     Indication: Pharyngitis streptococcal
     Route: 065
  4. DOXORUBICIN [Suspect]
     Active Substance: DOXORUBICIN
     Indication: Malignant splenic neoplasm
     Route: 065
  5. DOCETAXEL [Suspect]
     Active Substance: DOCETAXEL\DOCETAXEL ANHYDROUS
     Indication: Malignant splenic neoplasm
     Route: 065
  6. PREDNISONE [Suspect]
     Active Substance: PREDNISONE
     Indication: Colitis
     Route: 065
  7. DEXRAZOXANE [Suspect]
     Active Substance: DEXRAZOXANE
     Indication: Malignant splenic neoplasm
     Route: 065
  8. CEFTRIAXONE [Concomitant]
     Active Substance: CEFTRIAXONE\CEFTRIAXONE SODIUM
     Indication: Pharyngitis streptococcal
     Route: 065
  9. METHYLPREDNISOLONE [Suspect]
     Active Substance: METHYLPREDNISOLONE
     Indication: Colitis
     Route: 065
  10. TRABECTEDIN [Suspect]
     Active Substance: TRABECTEDIN
     Indication: Malignant splenic neoplasm
     Route: 065
  11. INFLIXIMAB [Suspect]
     Active Substance: INFLIXIMAB
     Indication: Colitis
     Route: 065
  12. VANCOMYCIN [Concomitant]
     Active Substance: VANCOMYCIN
     Indication: Clostridium difficile infection
     Route: 065
  13. IFOSFAMIDE [Suspect]
     Active Substance: IFOSFAMIDE
     Indication: Malignant splenic neoplasm
     Route: 065

REACTIONS (5)
  - Post procedural infection [Fatal]
  - Drug intolerance [Unknown]
  - Drug ineffective [Unknown]
  - Streptococcal infection [Fatal]
  - Pneumococcal sepsis [Fatal]
